FAERS Safety Report 8938020 (Version 1)
Quarter: 2012Q4

REPORT INFORMATION
  Report Type: Spontaneous
  Country: US (occurrence: None)
  Receive Date: 20121128
  Receipt Date: 20121128
  Transmission Date: 20130627
  Serious: No
  Sender: FDA-Public Use
  Company Number: None

PATIENT

DRUGS (4)
  1. DICLOFENAC [Suspect]
  2. BACLOFEN [Suspect]
  3. ORPHENADRINE CITRATE [Suspect]
  4. TETRACAINE [Suspect]

REACTIONS (1)
  - Cardiac disorder [None]
